FAERS Safety Report 9610133 (Version 2)
Quarter: 2013Q4

REPORT INFORMATION
  Report Type: Spontaneous
  Country: US (occurrence: US)
  Receive Date: 20131009
  Receipt Date: 20131009
  Transmission Date: 20140711
  Serious: No
  Sender: FDA-Public Use
  Company Number: US-PURDUE-USA-2012-0096156

PATIENT
  Sex: Male

DRUGS (4)
  1. BUTRANS [Suspect]
     Indication: RHEUMATOID ARTHRITIS
     Dosage: 5 MCG, UNK
     Route: 062
     Dates: start: 2011, end: 2011
  2. BUTRANS [Suspect]
     Dosage: 10 MCG, UNK
     Route: 062
     Dates: start: 2011, end: 2011
  3. BUTRANS [Suspect]
     Dosage: 5 MCG, UNK
     Route: 062
     Dates: start: 2011
  4. ENBREL [Concomitant]
     Indication: RHEUMATOID ARTHRITIS

REACTIONS (3)
  - Inadequate analgesia [Recovered/Resolved]
  - Nausea [Recovered/Resolved]
  - Hyperhidrosis [Recovered/Resolved]
